FAERS Safety Report 7170128-4 (Version None)
Quarter: 2010Q4

REPORT INFORMATION
  Report Type: 
  Country: None (occurrence: None)
  Receive Date: 20101123
  Receipt Date: 20100813
  Transmission Date: 20110411
  Serious: No
  Sender: FDA-Public Use
  Company Number: 017217

PATIENT
  Sex: Female
  Weight: 72.6 kg

DRUGS (5)
  1. CIMZIA [Suspect]
     Indication: CROHN'S DISEASE
     Dosage: (400 MG 1X/28 DAYS SUBCUTANEOUS)
     Route: 058
     Dates: start: 20100226
  2. CIPROFLAXACIN [Suspect]
     Indication: FISTULA
     Dosage: (500 MG BID ORAL)
     Route: 048
     Dates: start: 20100725, end: 20100803
  3. IMURAN [Concomitant]
  4. PENTASA [Concomitant]
  5. CELEXA [Concomitant]

REACTIONS (3)
  - DEHYDRATION [None]
  - GASTROINTESTINAL STOMA COMPLICATION [None]
  - NAUSEA [None]
